FAERS Safety Report 5010391-9 (Version None)
Quarter: 2006Q2

REPORT INFORMATION
  Report Type: 
  Country: None (occurrence: None)
  Receive Date: 20060523
  Receipt Date: 20060518
  Transmission Date: 20061013
  Serious: Yes (Hospitalization, Disabling, Other)
  Sender: FDA-Public Use
  Company Number: USA-2005-0021469

PATIENT
  Sex: Male

DRUGS (17)
  1. OXYCONTIN [Suspect]
     Indication: PAIN
     Dosage: SEE TEXT
  2. PERCOCET [Concomitant]
  3. DILAUDID [Concomitant]
  4. SOMA [Concomitant]
  5. ELAVIL [Concomitant]
  6. FLEXERIL [Concomitant]
  7. LORAZEPAM [Concomitant]
  8. DEPAKOTE [Concomitant]
  9. PAXIL [Concomitant]
  10. GLUCOPHAGE [Concomitant]
  11. ALTACE [Concomitant]
  12. HYDROCHLOROTHIAZIDE [Concomitant]
  13. INSULIN [Concomitant]
  14. SEROQUEL [Concomitant]
  15. AMBIEN [Concomitant]
  16. NAPROXEN [Concomitant]
  17. ACIPHEX [Concomitant]

REACTIONS (30)
  - ANXIETY [None]
  - BACK PAIN [None]
  - BOWEL MOVEMENT IRREGULARITY [None]
  - CHEST PAIN [None]
  - CONFUSIONAL STATE [None]
  - DELUSIONAL DISORDER, UNSPECIFIED TYPE [None]
  - DEPRESSION [None]
  - DIABETES MELLITUS INADEQUATE CONTROL [None]
  - DIARRHOEA [None]
  - DRUG DEPENDENCE [None]
  - DRUG WITHDRAWAL SYNDROME [None]
  - DRY THROAT [None]
  - DYSURIA [None]
  - FATIGUE [None]
  - HEADACHE [None]
  - HYPERHIDROSIS [None]
  - HYPERTENSION [None]
  - HYPOAESTHESIA [None]
  - INSOMNIA [None]
  - MENTAL STATUS CHANGES [None]
  - MUSCLE SPASMS [None]
  - NAUSEA [None]
  - OBSESSIVE-COMPULSIVE DISORDER [None]
  - PAIN [None]
  - PAIN IN EXTREMITY [None]
  - PARAESTHESIA [None]
  - PARANOIA [None]
  - SNORING [None]
  - SOMNOLENCE [None]
  - VOMITING [None]
